FAERS Safety Report 12898103 (Version 2)
Quarter: 2016Q4

REPORT INFORMATION
  Report Type: Spontaneous
  Country: US (occurrence: US)
  Receive Date: 20161031
  Receipt Date: 20161207
  Transmission Date: 20170207
  Serious: Yes (Other)
  Sender: FDA-Public Use
  Company Number: US-UNITED THERAPEUTICS-UNT-2016-016613

PATIENT
  Sex: Female

DRUGS (2)
  1. REMODULIN [Suspect]
     Active Substance: TREPROSTINIL
     Indication: PULMONARY ARTERIAL HYPERTENSION
     Dosage: 0.0129 ?G/KG, CONTINUING
     Route: 058
     Dates: start: 20151109
  2. REMODULIN [Suspect]
     Active Substance: TREPROSTINIL
     Indication: PORTOPULMONARY HYPERTENSION
     Dosage: UNK
     Route: 058
     Dates: start: 20151117

REACTIONS (4)
  - Erythema [Unknown]
  - Abdominal distension [Unknown]
  - Pain [Unknown]
  - Localised oedema [Unknown]

NARRATIVE: CASE EVENT DATE: 20161021
